FAERS Safety Report 4300584-8 (Version None)
Quarter: 2004Q1

REPORT INFORMATION
  Report Type: 
  Country: None (occurrence: None)
  Receive Date: 20040219
  Receipt Date: 20040219
  Transmission Date: 20041129
  Serious: Yes (Hospitalization)
  Sender: FDA-Public Use
  Company Number: None

PATIENT
  Age: 60 Year
  Sex: Male

DRUGS (4)
  1. ODANSETRON [Suspect]
     Indication: NON-SMALL CELL LUNG CANCER
     Dosage: 1ST COURSE
  2. DEXAMETHASONE [Suspect]
  3. GEMCITABINE [Suspect]
  4. VINORELBINE TARTRATE [Suspect]

REACTIONS (1)
  - FEBRILE NEUTROPENIA [None]
